FAERS Safety Report 4927947-1 (Version None)
Quarter: 2006Q1

REPORT INFORMATION
  Report Type: 
  Country: None (occurrence: None)
  Receive Date: 20060223
  Receipt Date: 20060217
  Transmission Date: 20060701
  Serious: Yes (Death, Hospitalization)
  Sender: FDA-Public Use
  Company Number: 2006016012

PATIENT
  Age: 58 Year
  Sex: Female

DRUGS (8)
  1. IDARUBICIN HYDROCHLORIDE SOLUTION [Suspect]
     Indication: ACUTE MYELOID LEUKAEMIA
     Dosage: UNK (9 MG/M2, 1 IN 1 D); INTRAVENOUS
     Route: 042
     Dates: start: 20051231, end: 20060102
  2. ETOPOSIDE [Suspect]
     Indication: ACUTE MYELOID LEUKAEMIA
     Dosage: UNK (54 MG/M2, 1 IN 1 D); INTRAVENOUS
     Route: 042
     Dates: start: 20051231, end: 20060106
  3. CYTARABINE [Suspect]
     Indication: ACUTE MYELOID LEUKAEMIA
     Dosage: UNK, (10 GRAM, ALTERNATED DAYS), INTRAVENOUS
     Route: 042
     Dates: start: 20051231, end: 20060106
  4. FILGRASTIM (FILGRASTIM) [Suspect]
     Indication: NEUTROPENIA
     Dosage: 3, 76 UG/KG (1 IN 1 D); SUBCUTANEOUS
     Route: 058
  5. IRBESARTAN [Concomitant]
  6. FLUCONAZOLE [Concomitant]
  7. VALACYCLOVIR HCL [Concomitant]
  8. TAZOCIN (PIPERACILLIN SODIUM, TAZOBACTAM SODIUM) [Concomitant]

REACTIONS (27)
  - ABDOMINAL PAIN [None]
  - ACIDOSIS [None]
  - ACIDOSIS HYPERCHLORAEMIC [None]
  - ACUTE PULMONARY OEDEMA [None]
  - ATELECTASIS [None]
  - ATRIAL FIBRILLATION [None]
  - BLOOD PRESSURE DECREASED [None]
  - CARDIO-RESPIRATORY ARREST [None]
  - DIARRHOEA [None]
  - DIPLOPIA [None]
  - ELECTROLYTE IMBALANCE [None]
  - FEBRILE NEUTROPENIA [None]
  - FLUID OVERLOAD [None]
  - HEMIPARESIS [None]
  - HYPERTENSION [None]
  - KUSSMAUL RESPIRATION [None]
  - METABOLIC ENCEPHALOPATHY [None]
  - MULTI-ORGAN FAILURE [None]
  - NAUSEA [None]
  - PANCREATITIS [None]
  - RENAL FAILURE ACUTE [None]
  - RESPIRATORY DISTRESS [None]
  - SEPSIS [None]
  - TROPONIN INCREASED [None]
  - URINE OUTPUT DECREASED [None]
  - VOMITING [None]
  - WEIGHT INCREASED [None]
